FAERS Safety Report 10453292 (Version 2)
Quarter: 2014Q3

REPORT INFORMATION
  Report Type: Report from Study
  Country: US (occurrence: US)
  Receive Date: 20140915
  Receipt Date: 20140915
  Transmission Date: 20150326
  Serious: Yes (Death, Hospitalization)
  Sender: FDA-Public Use
  Company Number: US-SA-2014SA099906

PATIENT
  Age: 52 Year
  Sex: Male
  Weight: 63.9 kg

DRUGS (31)
  1. LEUCOVORIN [Suspect]
     Active Substance: LEUCOVORIN
     Indication: PRODUCT USED FOR UNKNOWN INDICATION
     Route: 065
  2. AMLODIPINE [Concomitant]
     Active Substance: AMLODIPINE BESYLATE
     Route: 048
     Dates: start: 20140617
  3. PIPERACILLIN/TAZOBACTAM [Concomitant]
     Active Substance: PIPERACILLIN SODIUM\TAZOBACTAM SODIUM
  4. VANCOMYCIN [Concomitant]
     Active Substance: VANCOMYCIN
  5. ACETAMINOPHEN. [Concomitant]
     Active Substance: ACETAMINOPHEN
  6. ASPIRIN. [Concomitant]
     Active Substance: ASPIRIN
  7. COMPAZINE [Concomitant]
     Active Substance: PROCHLORPERAZINE MALEATE
     Indication: NAUSEA
     Route: 048
     Dates: start: 20140603
  8. ISOSORBIDE [Concomitant]
     Active Substance: ISOSORBIDE
  9. NEURONTIN [Concomitant]
     Active Substance: GABAPENTIN
     Route: 048
     Dates: start: 20140617
  10. OMEPRAZOLE. [Concomitant]
     Active Substance: OMEPRAZOLE
     Route: 048
     Dates: start: 20140617
  11. VITAMIN C [Concomitant]
     Active Substance: ASCORBIC ACID
     Dates: start: 20140603
  12. PROMETHAZINE [Concomitant]
     Active Substance: PROMETHAZINE\PROMETHAZINE HYDROCHLORIDE
  13. LOMOTIL [Concomitant]
     Active Substance: ATROPINE SULFATE\DIPHENOXYLATE HYDROCHLORIDE
     Dosage: AS DIRECTED AS NEEDED FOR LOOSE BM
     Route: 048
     Dates: start: 20131029, end: 20140603
  14. BLINDED THERAPY [Suspect]
     Active Substance: UNSPECIFIED INGREDIENT
     Indication: METASTATIC GASTRIC CANCER
     Route: 065
     Dates: start: 20131030, end: 20140617
  15. LOVENOX [Concomitant]
     Active Substance: ENOXAPARIN SODIUM
     Route: 058
     Dates: start: 20140617
  16. LASIX [Concomitant]
     Active Substance: FUROSEMIDE
     Route: 048
     Dates: start: 20131023, end: 20131224
  17. SPIRONOLACTONE. [Concomitant]
     Active Substance: SPIRONOLACTONE
     Route: 048
     Dates: start: 20131029, end: 20131224
  18. 5-FU [Suspect]
     Active Substance: FLUOROURACIL
     Indication: PRODUCT USED FOR UNKNOWN INDICATION
     Route: 065
  19. ALBUTEROL. [Concomitant]
     Active Substance: ALBUTEROL
  20. FUROSEMIDE. [Concomitant]
     Active Substance: FUROSEMIDE
  21. ONDANSETRON [Concomitant]
     Active Substance: ONDANSETRON
     Route: 048
     Dates: start: 20140603
  22. VITAMIN D3 [Concomitant]
     Active Substance: CHOLECALCIFEROL
     Dosage: DOSE:2000 UNIT(S)
     Route: 048
     Dates: start: 20140603
  23. METHYLPREDNISOLONE [Concomitant]
     Active Substance: METHYLPREDNISOLONE
  24. GLYCERYL TRINITRATE [Concomitant]
     Active Substance: NITROGLYCERIN
  25. POTASSIUM CHLORIDE. [Concomitant]
     Active Substance: POTASSIUM CHLORIDE
     Route: 048
     Dates: start: 20131023, end: 20131029
  26. OXALIPLATIN. [Suspect]
     Active Substance: OXALIPLATIN
     Indication: PRODUCT USED FOR UNKNOWN INDICATION
     Route: 065
  27. COLACE [Concomitant]
     Active Substance: DOCUSATE SODIUM
  28. LISINOPRIL. [Concomitant]
     Active Substance: LISINOPRIL
     Route: 048
     Dates: start: 20140603
  29. MORPHINE [Concomitant]
     Active Substance: MORPHINE
  30. DECADRON [Concomitant]
     Active Substance: DEXAMETHASONE
     Route: 048
     Dates: start: 20131029, end: 20140603
  31. PEG 3350 AND ELECTROLYTES FOR ORAL SOLUTION [Concomitant]
     Route: 048
     Dates: start: 20130906, end: 20130907

REACTIONS (2)
  - Pneumonia [Unknown]
  - Death [Fatal]

NARRATIVE: CASE EVENT DATE: 20140718
